FAERS Safety Report 12669221 (Version 1)
Quarter: 2016Q3

REPORT INFORMATION
  Report Type: Spontaneous
  Country: US (occurrence: US)
  Receive Date: 20160819
  Receipt Date: 20160819
  Transmission Date: 20161109
  Serious: No
  Sender: FDA-Public Use
  Company Number: US-BEH-2016072475

PATIENT
  Sex: Female
  Weight: 90.25 kg

DRUGS (10)
  1. HIZENTRA [Suspect]
     Active Substance: HUMAN IMMUNOGLOBULIN G
     Indication: PRODUCT USED FOR UNKNOWN INDICATION
     Dosage: 16 G, QW
     Route: 058
     Dates: start: 20141230
  2. NEXIUM [Concomitant]
     Active Substance: ESOMEPRAZOLE MAGNESIUM
  3. LIPITOR [Concomitant]
     Active Substance: ATORVASTATIN CALCIUM
  4. CYMBALTA [Concomitant]
     Active Substance: DULOXETINE HYDROCHLORIDE
  5. ATENOLOL. [Concomitant]
     Active Substance: ATENOLOL
  6. PLAVIX [Concomitant]
     Active Substance: CLOPIDOGREL BISULFATE
  7. TEMAZEPAM. [Concomitant]
     Active Substance: TEMAZEPAM
  8. SINGULAIR [Concomitant]
     Active Substance: MONTELUKAST SODIUM
  9. EPIPEN [Concomitant]
     Active Substance: EPINEPHRINE
  10. LIDOCAINE. [Concomitant]
     Active Substance: LIDOCAINE

REACTIONS (1)
  - Anaemia [Unknown]
